FAERS Safety Report 5418246-2 (Version None)
Quarter: 2007Q3

REPORT INFORMATION
  Report Type: 
  Country: None (occurrence: None)
  Receive Date: 20070817
  Receipt Date: 20070813
  Transmission Date: 20080115
  Serious: Yes (Other)
  Sender: FDA-Public Use
  Company Number: A0669820A

PATIENT
  Age: 28 Year
  Sex: Female

DRUGS (2)
  1. WELLBUTRIN XL [Suspect]
     Indication: STRESS
     Dosage: 300MG PER DAY
     Route: 048
     Dates: start: 20070701, end: 20070809
  2. MINOCYCLINE HCL [Concomitant]

REACTIONS (8)
  - CHILLS [None]
  - CONVULSION [None]
  - DEPRESSED LEVEL OF CONSCIOUSNESS [None]
  - EYE ROLLING [None]
  - FALL [None]
  - FOAMING AT MOUTH [None]
  - STARING [None]
  - TREMOR [None]
